FAERS Safety Report 6557885-2 (Version None)
Quarter: 2010Q1

REPORT INFORMATION
  Report Type: 
  Country: None (occurrence: None)
  Receive Date: 20100129
  Receipt Date: 20100122
  Transmission Date: 20100710
  Serious: Yes (Hospitalization)
  Sender: FDA-Public Use
  Company Number: GR-ABBOTT-10P-066-0620738-00

PATIENT
  Sex: Male
  Weight: 72 kg

DRUGS (12)
  1. HUMIRA [Suspect]
     Indication: RHEUMATOID ARTHRITIS
     Route: 058
  2. MONOSORDIL [Concomitant]
     Indication: CORONARY ARTERY DISEASE
     Route: 048
     Dates: start: 20050101, end: 20090924
  3. MIXTARD HUMAN 70/30 [Concomitant]
     Indication: DIABETES MELLITUS
     Dosage: INSULIN
     Route: 058
     Dates: start: 20000101
  4. METHOTREXATE [Concomitant]
     Indication: RHEUMATOID ARTHRITIS
     Dosage: 4 X 2.5 MG TABLETS WEEKLY
     Route: 048
     Dates: start: 20080115
  5. PLAQUENIL [Concomitant]
     Indication: RHEUMATOID ARTHRITIS
     Route: 048
     Dates: start: 20090115
  6. SINTROM [Concomitant]
     Indication: CORONARY ARTERY DISEASE
     Dosage: 3/4 OF A 4MG TABLET ONCE DAILY
     Route: 048
     Dates: start: 20050101, end: 20090922
  7. LEPUR [Concomitant]
     Indication: HYPERLIPIDAEMIA
     Route: 048
     Dates: start: 20090928
  8. SALOSPIR [Concomitant]
     Indication: CORONARY ARTERY DISEASE
     Route: 048
     Dates: start: 20090928
  9. DIOVAN [Concomitant]
     Indication: CORONARY ARTERY DISEASE
     Route: 048
     Dates: start: 20090928
  10. CARVEPEN [Concomitant]
     Indication: CORONARY ARTERY DISEASE
     Route: 048
     Dates: start: 20090928
  11. AMLOPEN [Concomitant]
     Indication: CORONARY ARTERY DISEASE
     Route: 048
     Dates: start: 20090928
  12. Z-BEC [Concomitant]
     Indication: CORONARY ARTERY DISEASE
     Route: 048
     Dates: start: 20090928

REACTIONS (1)
  - ATRIOVENTRICULAR BLOCK COMPLETE [None]
